FAERS Safety Report 7703329-4 (Version None)
Quarter: 2011Q3

REPORT INFORMATION
  Report Type: 
  Country: None (occurrence: None)
  Receive Date: 20110823
  Receipt Date: 20110810
  Transmission Date: 20111222
  Serious: Yes (Hospitalization)
  Sender: FDA-Public Use
  Company Number: GB-ELI_LILLY_AND_COMPANY-GB201108003639

PATIENT
  Age: 37 Year
  Sex: Female

DRUGS (4)
  1. ZYPREXA [Suspect]
     Dosage: 2.5 MG, PRN
  2. ZYPREXA [Suspect]
     Dosage: 10 MG, UNK
  3. ZYPREXA [Suspect]
     Dosage: 7.5 MG, UNK
  4. ZYPREXA [Suspect]
     Indication: POSTPARTUM DEPRESSION
     Dosage: 5 MG, UNK

REACTIONS (3)
  - OFF LABEL USE [None]
  - ANTIPHOSPHOLIPID SYNDROME [None]
  - HYPERTENSION [None]
